FAERS Safety Report 14387236 (Version 1)
Quarter: 2018Q1

REPORT INFORMATION
  Report Type: Report from Study
  Country: CA (occurrence: CA)
  Receive Date: 20180115
  Receipt Date: 20180115
  Transmission Date: 20180509
  Serious: Yes (Hospitalization)
  Sender: FDA-Public Use
  Company Number: CA-TAKEDA-2018TUS000832

PATIENT
  Age: 24 Year
  Sex: Female

DRUGS (5)
  1. PEN V                              /00001801/ [Concomitant]
     Active Substance: PENICILLIN V
     Dosage: 300 MG, BID
  2. URSOBIL [Concomitant]
     Active Substance: URSODIOL
     Dosage: UNK UNK, QD
  3. TACROLIMUS. [Concomitant]
     Active Substance: TACROLIMUS
     Dosage: 1.5 MG, BID
  4. VEDOLIZUMAB [Suspect]
     Active Substance: VEDOLIZUMAB
     Indication: COLITIS ULCERATIVE
     Dosage: 300 MG, UNK
     Route: 042
     Dates: start: 20160629
  5. REMICADE [Concomitant]
     Active Substance: INFLIXIMAB
     Dosage: UNK

REACTIONS (1)
  - Hospitalisation [Unknown]
